FAERS Safety Report 8829460 (Version 1)
Quarter: 2012Q4

REPORT INFORMATION
  Report Type: 
  Country: CO (occurrence: CO)
  Receive Date: 20121008
  Receipt Date: 20121008
  Transmission Date: 20130627
  Serious: Yes (Other)
  Sender: FDA-Public Use
  Company Number: CO-PFIZER INC-2012246395

PATIENT
  Age: 59 Year
  Sex: Female

DRUGS (2)
  1. LYRICA [Suspect]
     Indication: PAIN
     Dosage: 2 tablets of 150 mg, 1x/day
     Route: 048
     Dates: start: 201110
  2. LYRICA [Suspect]
     Indication: NERVOUS SYSTEM DISORDER

REACTIONS (4)
  - Complex regional pain syndrome [Recovering/Resolving]
  - Peroneal nerve palsy [Recovering/Resolving]
  - Bone disorder [Recovering/Resolving]
  - Depression [Recovering/Resolving]
